FAERS Safety Report 7368811-0 (Version None)
Quarter: 2011Q1

REPORT INFORMATION
  Report Type: 
  Country: None (occurrence: None)
  Receive Date: 20110310
  Receipt Date: 20110302
  Transmission Date: 20110831
  Serious: Yes (Hospitalization, Disabling, Other)
  Sender: FDA-Public Use
  Company Number: 2010SP050517

PATIENT
  Age: 28 Year
  Sex: Female
  Weight: 47.6277 kg

DRUGS (6)
  1. UNSPECIFIED MEDICINES [Suspect]
     Indication: PRODUCT USED FOR UNKNOWN INDICATION
  2. UNSPECIFIED STEROIDS [Suspect]
     Indication: PRODUCT USED FOR UNKNOWN INDICATION
  3. PREDNISONE [Concomitant]
  4. COLAZAL [Concomitant]
  5. NUVARING [Suspect]
     Indication: CONTRACEPTION
     Dosage: 1 DF; QM
     Dates: start: 20031001
  6. COUMADIN [Suspect]
     Indication: THROMBOSIS

REACTIONS (25)
  - DEEP VEIN THROMBOSIS [None]
  - LOWER GASTROINTESTINAL HAEMORRHAGE [None]
  - OSTEOPENIA [None]
  - BACK PAIN [None]
  - INSOMNIA [None]
  - ANAEMIA VITAMIN B12 DEFICIENCY [None]
  - SINUS TACHYCARDIA [None]
  - LEUKOCYTOSIS [None]
  - HAEMORRHAGIC DIATHESIS [None]
  - ROAD TRAFFIC ACCIDENT [None]
  - HAEMORRHAGE [None]
  - INTERNATIONAL NORMALISED RATIO INCREASED [None]
  - NECK PAIN [None]
  - RENAL VEIN THROMBOSIS [None]
  - CONTUSION [None]
  - ANXIETY [None]
  - IRON DEFICIENCY ANAEMIA [None]
  - POLYP COLORECTAL [None]
  - SMEAR CERVIX ABNORMAL [None]
  - IMPAIRED WORK ABILITY [None]
  - GASTROINTESTINAL HAEMORRHAGE [None]
  - HAEMORRHOIDS [None]
  - COLITIS ULCERATIVE [None]
  - MALAISE [None]
  - UNEVALUABLE EVENT [None]
